FAERS Safety Report 7004554-0 (Version None)
Quarter: 2010Q3

REPORT INFORMATION
  Report Type: 
  Country: None (occurrence: None)
  Receive Date: 20100921
  Receipt Date: 20100914
  Transmission Date: 20110219
  Serious: No
  Sender: FDA-Public Use
  Company Number: 2009BI040194

PATIENT
  Sex: Male

DRUGS (1)
  1. TYSABRI [Suspect]
     Indication: MULTIPLE SCLEROSIS
     Route: 042
     Dates: start: 20090805

REACTIONS (3)
  - MUSCLE SPASTICITY [None]
  - MUSCULOSKELETAL DISORDER [None]
  - SECONDARY PROGRESSIVE MULTIPLE SCLEROSIS [None]
